FAERS Safety Report 14586125 (Version 1)
Quarter: 2018Q1

REPORT INFORMATION
  Report Type: Report from Study
  Country: BR (occurrence: BR)
  Receive Date: 20180301
  Receipt Date: 20180301
  Transmission Date: 20180509
  Serious: Yes (Hospitalization, Other)
  Sender: FDA-Public Use
  Company Number: PHHY2018BR032819

PATIENT
  Sex: Female

DRUGS (1)
  1. ACLASTA [Suspect]
     Active Substance: ZOLEDRONIC ACID
     Indication: OSTEOPOROSIS
     Dosage: 1 DF (5 MG/100 ML)
     Route: 042
     Dates: start: 2012, end: 2012

REACTIONS (6)
  - Intentional self-injury [Recovered/Resolved]
  - Gait inability [Unknown]
  - Tremor [Unknown]
  - Paralysis [Unknown]
  - Musculoskeletal stiffness [Unknown]
  - Parkinson^s disease [Not Recovered/Not Resolved]
